FAERS Safety Report 8258457-4 (Version None)
Quarter: 2012Q2

REPORT INFORMATION
  Report Type: 
  Country: None (occurrence: None)
  Receive Date: 20120404
  Receipt Date: 20120327
  Transmission Date: 20120825
  Serious: Yes (Other)
  Sender: FDA-Public Use
  Company Number: DE-PFIZER INC-2012078217

PATIENT
  Age: 62 Year
  Sex: Male

DRUGS (2)
  1. REPAGLINIDE [Interacting]
     Dosage: UNK
     Dates: start: 20100101
  2. RAPAMUNE [Suspect]
     Dosage: 1 MG, UNK

REACTIONS (2)
  - DRUG INTERACTION [None]
  - DRUG LEVEL FLUCTUATING [None]
